FAERS Safety Report 6983882-9 (Version None)
Quarter: 2010Q3

REPORT INFORMATION
  Report Type: 
  Country: None (occurrence: None)
  Receive Date: 20100914
  Receipt Date: 20100903
  Transmission Date: 20110219
  Serious: Yes (Hospitalization)
  Sender: FDA-Public Use
  Company Number: US-ELI_LILLY_AND_COMPANY-US201009001329

PATIENT
  Sex: Female
  Weight: 178.3 kg

DRUGS (8)
  1. EXENATIDE [Suspect]
     Indication: DIABETES MELLITUS
     Dosage: 5 UG, 2/D
     Route: 058
     Dates: start: 20090817
  2. ABILIFY [Concomitant]
     Indication: DEPRESSION
     Dosage: 15 MG, DAILY (1/D)
     Dates: start: 20091203
  3. LEXAPRO [Concomitant]
     Indication: DEPRESSION
     Dosage: 20 MG, DAILY (1/D)
     Dates: start: 20090204
  4. LAMICTAL [Concomitant]
     Indication: DEPRESSION
     Dosage: 25 MG, DAILY (1/D)
     Dates: start: 20090204
  5. TOPAMAX [Concomitant]
     Indication: HEADACHE
     Dosage: 25 MG, UNK
     Dates: start: 20100101
  6. MEDROXYPROGESTERONE [Concomitant]
     Indication: POLYCYSTIC OVARIES
     Dosage: 10 MG, DAILY (1/D)
     Dates: start: 20090801
  7. MONOPRIL [Concomitant]
     Indication: HYPERTENSION
     Dosage: 10 MG, DAILY (1/D)
     Dates: start: 20091012
  8. METFORMIN HCL [Concomitant]
     Indication: DIABETES MELLITUS
     Dosage: 1 G, 2/D
     Dates: start: 20070724

REACTIONS (1)
  - MENINGIOMA [None]
